FAERS Safety Report 9111345 (Version 1)
Quarter: 2013Q1

REPORT INFORMATION
  Report Type: Spontaneous
  Country: US (occurrence: US)
  Receive Date: 20130219
  Receipt Date: 20130219
  Transmission Date: 20140127
  Serious: No
  Sender: FDA-Public Use
  Company Number: US-BRISTOL-MYERS SQUIBB COMPANY-16883027

PATIENT
  Age: 62 Year
  Sex: Female

DRUGS (1)
  1. ORENCIA [Suspect]
     Dosage: LAST INF:16AUG2012?QUANTITY DISPENSED:  1?NUMBER OF DEFECTIVE UNITS:  1
     Route: 042

REACTIONS (2)
  - Fatigue [Recovered/Resolved]
  - Nasopharyngitis [Unknown]
